FAERS Safety Report 8997244 (Version 2)
Quarter: 2013Q1

REPORT INFORMATION
  Report Type: Spontaneous
  Country: US (occurrence: US)
  Receive Date: 20130104
  Receipt Date: 20130205
  Transmission Date: 20140127
  Serious: No
  Sender: FDA-Public Use
  Company Number: US-PFIZER INC-2013002442

PATIENT
  Age: 62 Year
  Sex: Female
  Weight: 68.03 kg

DRUGS (2)
  1. PREMARIN [Suspect]
     Indication: HORMONE REPLACEMENT THERAPY
     Dosage: UNK
  2. TOPROL [Concomitant]
     Indication: CARDIAC DISORDER
     Dosage: 100 MG, DAILY

REACTIONS (3)
  - Hot flush [Unknown]
  - Mood swings [Unknown]
  - Depression [Recovered/Resolved]
